FAERS Safety Report 8123454-6 (Version None)
Quarter: 2012Q1

REPORT INFORMATION
  Report Type: 
  Country: None (occurrence: None)
  Receive Date: 20120208
  Receipt Date: 20120130
  Transmission Date: 20120608
  Serious: Yes (Other)
  Sender: FDA-Public Use
  Company Number: PHHY2012BR008945

PATIENT
  Sex: Female

DRUGS (7)
  1. EXFORGE HCT [Suspect]
     Indication: HYPERTENSION
     Dosage: 1 DF (160/10/12.5 MG), DAILY
     Route: 048
     Dates: start: 20111228
  2. ULTRACET [Concomitant]
     Indication: FIBROMYALGIA
     Dosage: 37.5 MG, Q8H
     Dates: start: 20111201
  3. RANITIDINE [Concomitant]
     Indication: HIATUS HERNIA
     Dosage: 150 MG, DAILY
     Dates: start: 19970101
  4. FERRINI [Concomitant]
     Indication: ANAEMIA
     Dosage: 150 MG, DAILY
  5. NORIPURUM FOLICO [Concomitant]
     Indication: ANAEMIA
     Dosage: 2 DF (100 MG), UNK
  6. DOLAMIN [Concomitant]
     Indication: FIBROMYALGIA
     Dosage: 125 MG, DAILY
  7. CLONAZEPAM [Concomitant]
     Indication: SLEEP DISORDER
     Dosage: 2 MG, DAILY

REACTIONS (6)
  - VASCULAR CALCIFICATION [None]
  - RHINITIS [None]
  - NECK PAIN [None]
  - BLOOD PRESSURE FLUCTUATION [None]
  - SINUSITIS [None]
  - RENAL CYST [None]
